FAERS Safety Report 6056250-4 (Version None)
Quarter: 2009Q1

REPORT INFORMATION
  Report Type: 
  Country: None (occurrence: None)
  Receive Date: 20090126
  Receipt Date: 20090126
  Transmission Date: 20090719
  Serious: No
  Sender: FDA-Public Use
  Company Number: None

PATIENT

DRUGS (1)
  1. DEPAKOTE [Suspect]

REACTIONS (19)
  - ABDOMINAL DISTENSION [None]
  - ABNORMAL BEHAVIOUR [None]
  - AGGRESSION [None]
  - AMMONIA INCREASED [None]
  - AURICULAR HAEMATOMA [None]
  - CONFUSIONAL STATE [None]
  - CRYING [None]
  - EMOTIONAL DISORDER [None]
  - EMOTIONAL DISTRESS [None]
  - FAMILY STRESS [None]
  - FLATULENCE [None]
  - FRUSTRATION [None]
  - GASTRIC DISORDER [None]
  - INJURY [None]
  - MENTAL DISORDER [None]
  - PAIN [None]
  - SCRATCH [None]
  - SELF INJURIOUS BEHAVIOUR [None]
  - WEIGHT DECREASED [None]
